FAERS Safety Report 8452092-0 (Version None)
Quarter: 2012Q2

REPORT INFORMATION
  Report Type: 
  Country: None (occurrence: None)
  Receive Date: 20120620
  Receipt Date: 20120330
  Transmission Date: 20120825
  Serious: No
  Sender: FDA-Public Use
  Company Number: US-VERTEX PHARMACEUTICALS INC.-AE-2012-004612

PATIENT
  Sex: Male

DRUGS (3)
  1. INCIVEK [Suspect]
     Indication: HEPATITIS C
     Route: 048
     Dates: start: 20120112
  2. PEGASYS [Concomitant]
     Indication: HEPATITIS C
     Route: 058
     Dates: start: 20120113
  3. RIBAPACK [Concomitant]
     Indication: HEPATITIS C
     Dates: start: 20120112

REACTIONS (6)
  - RECTAL HAEMORRHAGE [None]
  - PRURITUS [None]
  - HEADACHE [None]
  - ANAL PRURITUS [None]
  - ANAEMIA [None]
  - STOMATITIS [None]
